FAERS Safety Report 17498552 (Version 1)
Quarter: 2020Q1

REPORT INFORMATION
  Report Type: Spontaneous
  Country: US (occurrence: US)
  Receive Date: 20200304
  Receipt Date: 20200304
  Transmission Date: 20200409
  Serious: No
  Sender: FDA-Public Use
  Company Number: US-PIERREL PHARMA S.P.A.-2019PIR00033

PATIENT
  Age: 28 Year
  Weight: 81.63 kg

DRUGS (1)
  1. ORABLOC [Suspect]
     Active Substance: ARTICAINE HYDROCHLORIDE\EPINEPHRINE BITARTRATE
     Indication: DENTAL CARE
     Dosage: 1.8 ML, ONCE
     Dates: start: 20190903, end: 20190903

REACTIONS (1)
  - Administration site pain [Recovered/Resolved]

NARRATIVE: CASE EVENT DATE: 20190903
